FAERS Safety Report 6506243-5 (Version None)
Quarter: 2009Q4

REPORT INFORMATION
  Report Type: 
  Country: None (occurrence: None)
  Receive Date: 20091218
  Receipt Date: 20091215
  Transmission Date: 20100525
  Serious: Yes (Death, Other)
  Sender: FDA-Public Use
  Company Number: PHHY2009IR55638

PATIENT

DRUGS (3)
  1. CYCLOSPORINE [Suspect]
     Indication: LIVER TRANSPLANT
  2. PREDNISOLONE [Suspect]
     Indication: IMMUNOSUPPRESSION
  3. MYCOPHENOLATE MOFETIL [Suspect]
     Indication: IMMUNOSUPPRESSION

REACTIONS (15)
  - ABDOMINAL PAIN [None]
  - ABSCESS DRAINAGE [None]
  - ASCITES [None]
  - AZOTAEMIA [None]
  - CHILLS [None]
  - ESCHERICHIA INFECTION [None]
  - HAEMODIALYSIS [None]
  - HEPATIC ISCHAEMIA [None]
  - INTESTINAL OBSTRUCTION [None]
  - LIVER ABSCESS [None]
  - MULTI-ORGAN FAILURE [None]
  - PERITONITIS BACTERIAL [None]
  - PYREXIA [None]
  - SEPSIS [None]
  - WOUND INFECTION PSEUDOMONAS [None]
